FAERS Safety Report 4337851-8 (Version None)
Quarter: 2004Q1

REPORT INFORMATION
  Report Type: 
  Country: None (occurrence: None)
  Receive Date: 20040326
  Receipt Date: 20031117
  Transmission Date: 20041129
  Serious: No
  Sender: FDA-Public Use
  Company Number: 2003UW15148

PATIENT
  Sex: Male

DRUGS (1)
  1. ZESTRIL [Suspect]

REACTIONS (2)
  - ANAPHYLACTIC REACTION [None]
  - NEUROPATHY PERIPHERAL [None]
